FAERS Safety Report 9269222 (Version 2)
Quarter: 2014Q2

REPORT INFORMATION
  Report Type: Spontaneous
  Country: US (occurrence: US)
  Receive Date: 20130503
  Receipt Date: 20140423
  Transmission Date: 20141212
  Serious: No
  Sender: FDA-Public Use
  Company Number: US-PFIZER INC-2013134485

PATIENT
  Age: 69 Year
  Sex: Male

DRUGS (6)
  1. TORISEL [Suspect]
     Indication: RENAL CELL CARCINOMA
     Dosage: UNK
     Dates: start: 201205
  2. ADVAIR [Concomitant]
     Indication: CHRONIC OBSTRUCTIVE PULMONARY DISEASE
     Dosage: 1 PUFF TWICE DAILY
     Dates: start: 20120622
  3. MEGACE [Concomitant]
     Indication: APPETITE DISORDER
     Dosage: 800 MG, 1X/DAY
     Dates: start: 20120904
  4. METOPROLOL [Concomitant]
     Indication: HYPERTENSION
     Dosage: 25 MG, 1X/DAY
     Dates: start: 20120627
  5. SPIRIVA [Concomitant]
     Indication: CHRONIC OBSTRUCTIVE PULMONARY DISEASE
     Dosage: 1 DAILY
     Dates: start: 20120627
  6. VENTOLIN HFA [Concomitant]
     Indication: CHRONIC OBSTRUCTIVE PULMONARY DISEASE
     Dosage: 2 PUFFS Q 4H PRN
     Dates: start: 20120627

REACTIONS (3)
  - Pleural effusion [Unknown]
  - Disease progression [Unknown]
  - Renal cell carcinoma [Unknown]
